FAERS Safety Report 4808375-6 (Version None)
Quarter: 2005Q4

REPORT INFORMATION
  Report Type: 
  Country: None (occurrence: None)
  Receive Date: 20051021
  Receipt Date: 20020113
  Transmission Date: 20060501
  Serious: Yes (Hospitalization)
  Sender: FDA-Public Use
  Company Number: EWC020631368

PATIENT
  Age: 40 Year
  Sex: Male

DRUGS (4)
  1. ZYPREXA [Suspect]
     Indication: PSYCHOTIC DISORDER
     Dosage: 20 MG/DAY; A FEW YEARS
  2. LITHIUM CARBONATE [Concomitant]
  3. PAROXETINE HCL [Concomitant]
  4. OXAZEPAM [Concomitant]

REACTIONS (3)
  - ATELECTASIS [None]
  - LUNG INFILTRATION [None]
  - PULMONARY EMBOLISM [None]
